FAERS Safety Report 7732535-8 (Version None)
Quarter: 2011Q3

REPORT INFORMATION
  Report Type: 
  Country: None (occurrence: None)
  Receive Date: 20110906
  Receipt Date: 20110824
  Transmission Date: 20111222
  Serious: Yes (Hospitalization, Other)
  Sender: FDA-Public Use
  Company Number: US-RB-030746-11

PATIENT
  Age: 33 Year
  Sex: Male

DRUGS (2)
  1. SUBOXONE [Suspect]
     Indication: DRUG DEPENDENCE
     Dosage: DOSING INFORMATION UNKNOWN - SUBLINGUAL FILM
     Route: 060
     Dates: start: 20110101, end: 20110701
  2. XANAX [Suspect]
     Indication: DEPENDENCE
     Dosage: DOSING INFORMATION UNKNOWN
     Route: 065
     Dates: end: 20110701

REACTIONS (9)
  - OVERDOSE [None]
  - WRONG TECHNIQUE IN DRUG USAGE PROCESS [None]
  - DRUG ABUSE [None]
  - DRUG WITHDRAWAL SYNDROME [None]
  - SUICIDAL IDEATION [None]
  - DEHYDRATION [None]
  - EUPHORIC MOOD [None]
  - WHEEZING [None]
  - LOSS OF CONSCIOUSNESS [None]
